FAERS Safety Report 4747046-1 (Version None)
Quarter: 2005Q3

REPORT INFORMATION
  Report Type: 
  Country: None (occurrence: None)
  Receive Date: 20050815
  Receipt Date: 20050803
  Transmission Date: 20060218
  Serious: Yes (Hospitalization)
  Sender: FDA-Public Use
  Company Number: S04-USA-07194-01

PATIENT
  Age: 30 Year
  Sex: Female
  Weight: 46.2669 kg

DRUGS (3)
  1. CELEXA [Suspect]
     Indication: DEPRESSION
     Dosage: 20 MG QD PO
     Route: 048
     Dates: start: 20041019
  2. CLARITIN [Concomitant]
  3. NATELLE [Concomitant]

REACTIONS (9)
  - BACK PAIN [None]
  - CAESAREAN SECTION [None]
  - DEHYDRATION [None]
  - DRUG EXPOSURE DURING PREGNANCY [None]
  - DRUG INEFFECTIVE [None]
  - KIDNEY INFECTION [None]
  - NAUSEA [None]
  - PREMATURE LABOUR [None]
  - VOMITING [None]
